FAERS Safety Report 5453299-7 (Version None)
Quarter: 2007Q3

REPORT INFORMATION
  Report Type: 
  Country: None (occurrence: None)
  Receive Date: 20070914
  Receipt Date: 20070904
  Transmission Date: 20080115
  Serious: Yes (Hospitalization)
  Sender: FDA-Public Use
  Company Number: US-ABBOTT-07P-163-0416044-00

PATIENT
  Sex: Male
  Weight: 97.61 kg

DRUGS (4)
  1. AZMACORT [Suspect]
     Indication: STEROID THERAPY
     Route: 055
     Dates: start: 20070816
  2. AZMACORT [Suspect]
     Indication: TRACHEAL OPERATION
  3. LISINOPRIL [Concomitant]
     Indication: HYPERTENSION
     Route: 048
  4. ALBUTEROL/ATROVENT NEBULIZER [Concomitant]
     Indication: RESPIRATORY THERAPY
     Route: 055

REACTIONS (5)
  - DYSPNOEA [None]
  - PRURITUS [None]
  - RASH [None]
  - SLEEP APNOEA SYNDROME [None]
  - TRACHEAL OEDEMA [None]
